FAERS Safety Report 21298967 (Version 1)
Quarter: 2022Q3

REPORT INFORMATION
  Report Type: Spontaneous
  Country: CN (occurrence: CN)
  Receive Date: 20220906
  Receipt Date: 20220906
  Transmission Date: 20221027
  Serious: Yes (Hospitalization)
  Sender: FDA-Public Use
  Company Number: CN-NOVARTISPH-NVSC2022CN199804

PATIENT
  Age: 57 Year
  Sex: Male
  Weight: 69.9 kg

DRUGS (9)
  1. ATORVASTATIN CALCIUM [Suspect]
     Active Substance: ATORVASTATIN CALCIUM
     Indication: Arteriosclerosis
     Dosage: 20 MG, QN
     Route: 048
  2. DABIGATRAN ETEXILATE [Concomitant]
     Active Substance: DABIGATRAN ETEXILATE
     Indication: Anticoagulant therapy
     Dosage: 110 MG, BID
     Route: 048
  3. INSULIN ASPART [Concomitant]
     Active Substance: INSULIN ASPART
     Indication: Blood glucose abnormal
     Dosage: 14 U BEFORE BED TIME
     Route: 058
  4. INSULIN ASPART [Concomitant]
     Active Substance: INSULIN ASPART
     Dosage: 10U IN MORNING AND 8U IN EVENING
     Route: 058
  5. ACARBOSE [Concomitant]
     Active Substance: ACARBOSE
     Indication: Blood glucose abnormal
     Dosage: 100 MG, TID
     Route: 048
  6. ACARBOSE [Concomitant]
     Active Substance: ACARBOSE
     Dosage: 50 MG, TID
     Route: 048
  7. METFORMIN [Concomitant]
     Active Substance: METFORMIN HYDROCHLORIDE
     Indication: Blood glucose abnormal
     Dosage: 500 MG, BID
     Route: 048
  8. DAPAGLIFLOZIN [Concomitant]
     Active Substance: DAPAGLIFLOZIN
     Indication: Blood glucose abnormal
     Dosage: 10 MG, QD
     Route: 048
  9. VILDAGLIPTIN [Concomitant]
     Active Substance: VILDAGLIPTIN
     Indication: Blood glucose abnormal
     Dosage: 50 MG, BID
     Route: 048

REACTIONS (1)
  - Autoimmune haemolytic anaemia [Recovering/Resolving]
